FAERS Safety Report 24591681 (Version 2)
Quarter: 2024Q4

REPORT INFORMATION
  Report Type: Report from Study
  Country: JP (occurrence: JP)
  Receive Date: 20241108
  Receipt Date: 20241112
  Transmission Date: 20250114
  Serious: Yes (Other)
  Sender: SANOFI AVENTIS
  Company Number: JP-SAKK-01396527

PATIENT
  Age: 88 Year
  Sex: Male
  Weight: 67.1 kg

DRUGS (4)
  1. SUTIMLIMAB [Suspect]
     Active Substance: SUTIMLIMAB
     Indication: Cold type haemolytic anaemia
     Dosage: 6.5 G, QW
     Route: 041
     Dates: start: 20221206, end: 20221206
  2. SUTIMLIMAB [Suspect]
     Active Substance: SUTIMLIMAB
     Dosage: 6.5 G, QW
     Route: 041
     Dates: start: 20221129, end: 20221129
  3. PNEUMOCOCCAL VACCINE POLYVALENT NOS [Concomitant]
     Active Substance: PNEUMOCOCCAL VACCINE, POLYVALENT
     Indication: Immunisation
     Dosage: UNK
     Route: 065
     Dates: start: 20221117, end: 20221117
  4. MENINGOCOCCAL VACCINE CONJ [Concomitant]
     Indication: Immunisation
     Dosage: UNK
     Route: 065
     Dates: start: 20221118, end: 20221118

REACTIONS (5)
  - Renal impairment [Not Recovered/Not Resolved]
  - Penile swelling [Recovered/Resolved]
  - Oedema [Recovered/Resolved]
  - Dysuria [Recovering/Resolving]
  - Iron overload [Not Recovered/Not Resolved]

NARRATIVE: CASE EVENT DATE: 20221207
